FAERS Safety Report 5112646-6 (Version None)
Quarter: 2006Q3

REPORT INFORMATION
  Report Type: 
  Country: None (occurrence: None)
  Receive Date: 20060918
  Receipt Date: 20060918
  Transmission Date: 20061208
  Serious: No
  Sender: FDA-Public Use
  Company Number: None

PATIENT
  Age: 55 Year
  Sex: Male

DRUGS (4)
  1. ZYBAN [Suspect]
     Dosage: SEE IMAGE
     Dates: start: 20040719, end: 20050201
  2. METOPROLOL SUCCINATE EXTENDED RELEASE [Concomitant]
  3. COUMADIN [Concomitant]
  4. ASPIRIN [Interacting]

REACTIONS (17)
  - ANXIETY [None]
  - AUTOIMMUNE DISORDER [None]
  - COAGULOPATHY [None]
  - DEPRESSION [None]
  - DRUG DOSE OMISSION [None]
  - DRUG INEFFECTIVE [None]
  - ECCHYMOSIS [None]
  - FATIGUE [None]
  - HEPATIC NECROSIS [None]
  - HEPATITIS [None]
  - HEPATOCELLULAR DAMAGE [None]
  - HEPATOTOXICITY [None]
  - IMPAIRED WORK ABILITY [None]
  - INTERNATIONAL NORMALISED RATIO INCREASED [None]
  - MALAISE [None]
  - TREATMENT NONCOMPLIANCE [None]
  - URINARY TRACT INFECTION [None]
